FAERS Safety Report 10717741 (Version 3)
Quarter: 2017Q1

REPORT INFORMATION
  Report Type: Spontaneous
  Country: US (occurrence: US)
  Receive Date: 20150116
  Receipt Date: 20170209
  Transmission Date: 20170428
  Serious: No
  Sender: FDA-Public Use
  Company Number: US-PFIZER INC-2015018587

PATIENT
  Age: 47 Year
  Sex: Female

DRUGS (18)
  1. TIZANIDINE HCL [Concomitant]
     Active Substance: TIZANIDINE HYDROCHLORIDE
     Dosage: 4 MG, AS NEEDED (1 BID PRN)
  2. VOLTAREN [Concomitant]
     Active Substance: DICLOFENAC SODIUM
     Dosage: UNK (USE AS DIRECTED)
  3. NORTRIPTYLINE HCL [Concomitant]
     Active Substance: NORTRIPTYLINE HYDROCHLORIDE
     Dosage: 30 MG, DAILY  (EVERY NIGHT AT BEDTIME)
     Route: 048
  4. FOLIC ACID. [Concomitant]
     Active Substance: FOLIC ACID
     Dosage: 1 MG, 2X/DAY
     Route: 048
  5. FLONASE [Concomitant]
     Active Substance: FLUTICASONE PROPIONATE
     Dosage: UNK UNK, 1X/DAY (50 MCG/ACT) (QD)
  6. MOTRIN IB [Concomitant]
     Active Substance: IBUPROFEN
     Dosage: UNK
  7. LYRICA [Suspect]
     Active Substance: PREGABALIN
     Dosage: 300 MG, 3X/DAY
     Route: 048
  8. RIBOFLAVIN [Concomitant]
     Active Substance: RIBOFLAVIN
     Dosage: 400 MG, 2X/DAY
     Route: 048
  9. FIORICET [Concomitant]
     Active Substance: ACETAMINOPHEN\BUTALBITAL\CAFFEINE
     Indication: MIGRAINE
     Dosage: 1 DF, AS NEEDED (ACETAMINOPHEN 300 MG, BUTALBITAL 50 MG, CAFFEINE 40 MG) (EVE HOURS)
     Route: 048
  10. VERELAN PM [Concomitant]
     Active Substance: VERAPAMIL HYDROCHLORIDE
     Dosage: 200 MG, 1X/DAY (EVERY NIGHT AT BEDTIME)
     Route: 048
  11. VITAMIN B6 [Concomitant]
     Active Substance: PYRIDOXINE HYDROCHLORIDE
     Dosage: 50 MG, DAILY
     Route: 048
  12. IMITREX [Concomitant]
     Active Substance: SUMATRIPTAN SUCCINATE
     Dosage: UNK UNK, AS NEEDED (6 MG/0.5ML) (EVERY HOURS X2 IN 24 HOURS)
  13. TOPAMAX [Concomitant]
     Active Substance: TOPIRAMATE
     Dosage: 200 MG, DAILY (MORNING)
     Route: 048
  14. ALEVE [Concomitant]
     Active Substance: NAPROXEN SODIUM
     Dosage: UNK
  15. FLEXERIL [Concomitant]
     Active Substance: CYCLOBENZAPRINE HYDROCHLORIDE
     Dosage: 10 MG, AS NEEDED ( THREE TIMES A DAY)
     Route: 048
  16. MAGNESIUM OXIDE. [Concomitant]
     Active Substance: MAGNESIUM OXIDE
     Dosage: 400 MG, 2X/DAY
     Route: 048
  17. OXYBUTYNIN [Concomitant]
     Active Substance: OXYBUTYNIN
     Dosage: 10 MG, 3X/DAY (QHS)
     Route: 048
  18. TOPAMAX [Concomitant]
     Active Substance: TOPIRAMATE
     Dosage: 300 MG, DAILY (AT NIGHT)
     Route: 048

REACTIONS (3)
  - Pain [Unknown]
  - Paraesthesia [Unknown]
  - Musculoskeletal pain [Unknown]
